FAERS Safety Report 12708311 (Version 1)
Quarter: 2016Q3

REPORT INFORMATION
  Report Type: Spontaneous
  Country: GB (occurrence: GB)
  Receive Date: 20160901
  Receipt Date: 20160901
  Transmission Date: 20161109
  Serious: Yes (Disabling)
  Sender: FDA-Public Use
  Company Number: GB-MYLANLABS-2016M1036854

PATIENT

DRUGS (4)
  1. BETAHISTINE [Concomitant]
     Active Substance: BETAHISTINE
     Dosage: 1 DF, TID
     Dates: start: 20151222
  2. BUDESONIDE. [Concomitant]
     Active Substance: BUDESONIDE
     Dosage: UNK (USE AS DIRECTED)
     Dates: start: 20150715
  3. SALBUTAMOL [Concomitant]
     Active Substance: ALBUTEROL
     Dosage: 2 DF, UNK
     Route: 055
     Dates: start: 20150715
  4. SIMVASTATIN. [Suspect]
     Active Substance: SIMVASTATIN
     Dosage: 40 MG, UNK
     Route: 048
     Dates: start: 20160818

REACTIONS (1)
  - Pain [Unknown]

NARRATIVE: CASE EVENT DATE: 20160818
